FAERS Safety Report 25899186 (Version 2)
Quarter: 2025Q4

REPORT INFORMATION
  Report Type: Spontaneous
  Country: CA (occurrence: CA)
  Receive Date: 20251009
  Receipt Date: 20251024
  Transmission Date: 20260118
  Serious: Yes (Life-Threatening, Hospitalization)
  Sender: TEVA
  Company Number: CA-TEVA-VS-3378462

PATIENT
  Age: 70 Year
  Sex: Female

DRUGS (5)
  1. ALBUTEROL [Suspect]
     Active Substance: ALBUTEROL
     Indication: Respiratory distress
     Dosage: NEBULIZED
     Route: 065
  2. CARBOXYMETHYLCELLULOSE [Suspect]
     Active Substance: CARBOXYMETHYLCELLULOSE
     Indication: Vocal fold immobility
     Dosage: RENU GEL INJECTION WAS ADMINISTERED WITH A DISPOSABLE 23-GAUGE NEEDLE IN A PERCUTANEOUS FASHION W...
     Route: 065
  3. DEXAMETHASONE [Suspect]
     Active Substance: DEXAMETHASONE
     Indication: Respiratory distress
     Dosage: HIGH DOSE
     Route: 042
  4. DEXAMETHASONE [Suspect]
     Active Substance: DEXAMETHASONE
     Indication: Respiratory distress
     Route: 042
  5. EPINEPHRINE [Suspect]
     Active Substance: EPINEPHRINE
     Indication: Respiratory distress
     Dosage: NEBULIZED
     Route: 065

REACTIONS (6)
  - Obstructive airways disorder [Recovering/Resolving]
  - Drug ineffective [Unknown]
  - Laryngeal oedema [Recovering/Resolving]
  - Respiratory distress [Recovering/Resolving]
  - Local reaction [Recovering/Resolving]
  - Dysphonia [Recovering/Resolving]
